FAERS Safety Report 7204968-X (Version None)
Quarter: 2010Q4

REPORT INFORMATION
  Report Type: 
  Country: None (occurrence: None)
  Receive Date: 20101230
  Receipt Date: 20101229
  Transmission Date: 20110411
  Serious: Yes (Death)
  Sender: FDA-Public Use
  Company Number: US-B.I. PHARMACEUTICALS,INC./RIDGEFIELD-2010-BP-13468BP

PATIENT
  Age: 90 Year
  Sex: Male

DRUGS (15)
  1. PRADAXA [Suspect]
     Indication: CEREBROVASCULAR ACCIDENT PROPHYLAXIS
     Dosage: 300 MG
     Route: 048
     Dates: start: 20101110, end: 20101120
  2. PRADAXA [Suspect]
     Indication: ATRIAL FIBRILLATION
  3. PRADAXA [Suspect]
     Indication: ATRIAL FLUTTER
  4. CARVEDILOL [Concomitant]
     Dosage: 12.5 MG
     Dates: start: 20101110, end: 20101120
  5. AVODART [Concomitant]
     Indication: BENIGN PROSTATIC HYPERPLASIA
     Dosage: 0.5 MG
     Dates: start: 20080101, end: 20101120
  6. AVODART [Concomitant]
     Indication: URINARY RETENTION
  7. FUROSEMIDE [Concomitant]
     Indication: OEDEMA
     Dosage: 40 MG
  8. CENTRUM SILVER [Concomitant]
  9. FLOMAX [Concomitant]
     Dosage: 0.4 MG
  10. LIPITOR [Concomitant]
     Dosage: 40 MG
  11. ASPIRIN [Concomitant]
     Dosage: 81 MG
     Dates: end: 20101101
  12. VICODIN [Concomitant]
     Indication: PAIN
     Dates: end: 20101101
  13. VICODIN [Concomitant]
     Indication: SLEEP DISORDER
  14. TRAMADOL [Concomitant]
     Dates: end: 20101101
  15. DULCOLAX [Concomitant]
     Indication: CONSTIPATION

REACTIONS (21)
  - ANGIOPATHY [None]
  - ASTHENIA [None]
  - BEDRIDDEN [None]
  - BLOOD POTASSIUM DECREASED [None]
  - BLOOD PRESSURE DECREASED [None]
  - CEREBROVASCULAR INSUFFICIENCY [None]
  - FALL [None]
  - HAEMOGLOBIN DECREASED [None]
  - HYPOALBUMINAEMIA [None]
  - HYPOTENSION [None]
  - LEUKOCYTOSIS [None]
  - MENTAL STATUS CHANGES [None]
  - MUSCULAR WEAKNESS [None]
  - PAIN [None]
  - PAIN IN EXTREMITY [None]
  - RED BLOOD CELL SEDIMENTATION RATE INCREASED [None]
  - RENAL FAILURE [None]
  - RESTLESSNESS [None]
  - SERUM FERRITIN NORMAL [None]
  - STAPHYLOCOCCUS TEST POSITIVE [None]
  - URINARY RETENTION [None]
